FAERS Safety Report 16772685 (Version 1)
Quarter: 2019Q3

REPORT INFORMATION
  Report Type: Spontaneous
  Country: US (occurrence: US)
  Receive Date: 20190904
  Receipt Date: 20190904
  Transmission Date: 20191005
  Serious: No
  Sender: FDA-Public Use
  Company Number: US-ASTRAZENECA-2019SF13464

PATIENT
  Sex: Female
  Weight: 38.6 kg

DRUGS (1)
  1. TUDORZA PRESSAIR [Suspect]
     Active Substance: ACLIDINIUM BROMIDE
     Indication: CHRONIC OBSTRUCTIVE PULMONARY DISEASE
     Route: 055

REACTIONS (7)
  - Wrong technique in device usage process [Unknown]
  - Intentional product misuse [Unknown]
  - Colitis ulcerative [Unknown]
  - Coronary artery disease [Unknown]
  - Fatigue [Unknown]
  - Malaise [Unknown]
  - Device malfunction [Unknown]
